FAERS Safety Report 23160723 (Version 3)
Quarter: 2024Q2

REPORT INFORMATION
  Report Type: Spontaneous
  Country: US (occurrence: US)
  Receive Date: 20231108
  Receipt Date: 20240603
  Transmission Date: 20240716
  Serious: No
  Sender: FDA-Public Use
  Company Number: US-SA-SAC20231030002251

PATIENT
  Age: 1 Year
  Sex: Male

DRUGS (2)
  1. DUPIXENT [Suspect]
     Active Substance: DUPILUMAB
     Indication: Dermatitis atopic
     Dosage: 200 MG, Q4W
     Route: 058
  2. DUPIXENT [Suspect]
     Active Substance: DUPILUMAB
     Dosage: 300 MG, QM
     Route: 058

REACTIONS (6)
  - Sleep disorder [Not Recovered/Not Resolved]
  - Injection site swelling [Recovered/Resolved]
  - Therapeutic response decreased [Not Recovered/Not Resolved]
  - Off label use of device [Unknown]
  - Eczema [Unknown]
  - Therapeutic response shortened [Unknown]
